FAERS Safety Report 6402180-5 (Version None)
Quarter: 2009Q4

REPORT INFORMATION
  Report Type: 
  Country: None (occurrence: None)
  Receive Date: 20091014
  Receipt Date: 20091014
  Transmission Date: 20100525
  Serious: No
  Sender: FDA-Public Use
  Company Number: None

PATIENT
  Sex: Male
  Weight: 650 kg

DRUGS (2)
  1. ZYVOX [Suspect]
     Indication: INFECTION
     Dosage: Q12 ORAL
     Route: 048
     Dates: start: 20090913, end: 20091001
  2. MEPERIDINE HCL [Suspect]
     Indication: PAIN MANAGEMENT
     Dosage: 20 MG Q 8 MINS PCA PUMP IVP
     Route: 042
     Dates: start: 20090929, end: 20091001

REACTIONS (3)
  - GRAFT COMPLICATION [None]
  - HYPERREFLEXIA [None]
  - SEROTONIN SYNDROME [None]
